FAERS Safety Report 16279529 (Version 1)
Quarter: 2019Q2

REPORT INFORMATION
  Report Type: Spontaneous
  Country: US (occurrence: US)
  Receive Date: 20190401
  Receipt Date: 20190401
  Transmission Date: 20190711
  Serious: No
  Sender: FDA-Public Use
  Company Number: None

PATIENT
  Age: 79 Year
  Sex: Female
  Weight: 115.21 kg

DRUGS (4)
  1. FORTEO [Suspect]
     Active Substance: TERIPARATIDE
     Indication: SENILE OSTEOPOROSIS
     Dosage: STRENGTH 600 MCG/2.4 ML PEN INJ
     Route: 058
     Dates: start: 201712
  2. OLUMIANT [Suspect]
     Active Substance: BARICITINIB
     Indication: RHEUMATOID ARTHRITIS
  3. FORTEO [Suspect]
     Active Substance: TERIPARATIDE
     Indication: RHEUMATOID ARTHRITIS
  4. OLUMIANT [Suspect]
     Active Substance: BARICITINIB
     Indication: SENILE OSTEOPOROSIS
     Route: 048
     Dates: start: 201903

REACTIONS (4)
  - Urinary tract infection [None]
  - Dehydration [None]
  - Therapy cessation [None]
  - Infection [None]
